FAERS Safety Report 5831222-0 (Version None)
Quarter: 2008Q3

REPORT INFORMATION
  Report Type: 
  Country: None (occurrence: None)
  Receive Date: 20080801
  Receipt Date: 20070629
  Transmission Date: 20090109
  Serious: No
  Sender: FDA-Public Use
  Company Number: US-BRISTOL-MYERS SQUIBB COMPANY-13831508

PATIENT
  Age: 82 Year
  Sex: Female
  Weight: 74 kg

DRUGS (3)
  1. COUMADIN [Suspect]
     Indication: CARDIAC FIBRILLATION
     Dates: start: 20070501
  2. TOPROL-XL [Concomitant]
     Dates: end: 20070501
  3. ANTIBIOTIC [Concomitant]
     Indication: URINARY TRACT INFECTION

REACTIONS (3)
  - BONE PAIN [None]
  - DIZZINESS [None]
  - URINARY TRACT INFECTION [None]
